FAERS Safety Report 21645866 (Version 2)
Quarter: 2024Q1

REPORT INFORMATION
  Report Type: Spontaneous
  Country: IT (occurrence: IT)
  Receive Date: 20221126
  Receipt Date: 20240119
  Transmission Date: 20240410
  Serious: Yes (Hospitalization, Other)
  Sender: FDA-Public Use
  Company Number: IT-JNJFOC-20221143148

PATIENT
  Age: 64 Year
  Sex: Female
  Weight: 56 kg

DRUGS (14)
  1. DARATUMUMAB [Suspect]
     Active Substance: DARATUMUMAB
     Indication: Plasma cell myeloma
     Route: 042
     Dates: start: 20220804, end: 20220804
  2. DARATUMUMAB [Suspect]
     Active Substance: DARATUMUMAB
     Route: 042
     Dates: start: 20221013, end: 20221013
  3. DEXAMETHASONE [Suspect]
     Active Substance: DEXAMETHASONE
     Indication: Plasma cell myeloma
     Route: 042
     Dates: start: 20220804, end: 20220804
  4. DEXAMETHASONE [Suspect]
     Active Substance: DEXAMETHASONE
     Route: 048
     Dates: start: 20221103, end: 20221103
  5. ACYCLOVIR [Concomitant]
     Active Substance: ACYCLOVIR
     Indication: Prophylaxis
     Route: 048
  6. CHOLECALCIFEROL [Concomitant]
     Active Substance: CHOLECALCIFEROL
     Indication: Prophylaxis
     Route: 048
  7. CITALOPRAM [Concomitant]
     Active Substance: CITALOPRAM HYDROBROMIDE
     Indication: Prophylaxis
     Route: 048
  8. FOSTER [Concomitant]
     Active Substance: BECLOMETHASONE\FORMOTEROL
     Indication: Chronic obstructive pulmonary disease
     Route: 065
  9. BACTRIM [Concomitant]
     Active Substance: SULFAMETHOXAZOLE\TRIMETHOPRIM
     Indication: Prophylaxis
     Route: 048
  10. BROMAZEPAM [Concomitant]
     Active Substance: BROMAZEPAM
  11. LORATADINE [Concomitant]
     Active Substance: LORATADINE
     Indication: Prophylaxis
     Route: 065
  12. LYSINE ACETYLSALICYLATE [Concomitant]
     Active Substance: ASPIRIN DL-LYSINE
     Indication: Prophylaxis
     Route: 065
  13. ACETAMINOPHEN [Concomitant]
     Active Substance: ACETAMINOPHEN
     Indication: Prophylaxis
     Route: 048
  14. ALBUTEROL [Concomitant]
     Active Substance: ALBUTEROL
     Indication: Prophylaxis
     Route: 048

REACTIONS (2)
  - COVID-19 [Recovered/Resolved]
  - Deep vein thrombosis [Unknown]

NARRATIVE: CASE EVENT DATE: 20221103
